FAERS Safety Report 4608060-X (Version None)
Quarter: 2005Q2

REPORT INFORMATION
  Report Type: 
  Country: None (occurrence: None)
  Receive Date: 20050303
  Receipt Date: 20041101
  Transmission Date: 20051028
  Serious: No
  Sender: FDA-Public Use
  Company Number: 210136

PATIENT
  Age: 29 Year
  Sex: Female

DRUGS (10)
  1. XOLAIR [Suspect]
     Indication: ASTHMA
     Dosage: 375 MG, Q2W, SUBCUTANEOUS
     Route: 058
     Dates: start: 20040120
  2. ADVAIR (FLUTICASONE PROPIONATE, SALMETEROL XINAFOATE) [Concomitant]
  3. SEMPREX (ACRIVASTINE) [Concomitant]
  4. SINGULAIR [Concomitant]
  5. ASTELIN NASAL SPRAY (AZELASTINE HYDROCHLORIDE) [Concomitant]
  6. RHINOCORT (BUDENOSIDE) [Concomitant]
  7. PEPCID [Concomitant]
  8. UNIPHYL [Concomitant]
  9. VENTOLIN (ALBUTEROL SULFATE, ALBUTEROL) [Concomitant]
  10. ALBUTEROL NEBULIZER (ALBUTEROL, ALBUTEROL SULFATE) [Concomitant]

REACTIONS (1)
  - METRORRHAGIA [None]
